FAERS Safety Report 8261577-1 (Version None)
Quarter: 2012Q1

REPORT INFORMATION
  Report Type: 
  Country: None (occurrence: None)
  Receive Date: 20120330
  Receipt Date: 20120319
  Transmission Date: 20120608
  Serious: Yes (Hospitalization)
  Sender: FDA-Public Use
  Company Number: JPI-P-020463

PATIENT
  Age: 41 Year
  Sex: Female
  Weight: 55.3388 kg

DRUGS (2)
  1. XYREM [Suspect]
     Indication: CATAPLEXY
     Dosage: 7.5 GM (3.75 GM, 2 IN 1 D)ORAL
     Route: 048
     Dates: start: 20120220, end: 20120101
  2. XYREM [Suspect]
     Indication: CATAPLEXY
     Dosage: 7.5 GM (3.75 GM, 2 IN 1 D)ORAL
     Route: 048
     Dates: start: 20120101

REACTIONS (12)
  - PROCEDURAL PAIN [None]
  - MENORRHAGIA [None]
  - DRY MOUTH [None]
  - COUGH [None]
  - HEADACHE [None]
  - PYREXIA [None]
  - HALLUCINATION [None]
  - NASOPHARYNGITIS [None]
  - FATIGUE [None]
  - CONSTIPATION [None]
  - ABDOMINAL DISCOMFORT [None]
  - DYSPNOEA [None]
